FAERS Safety Report 10481238 (Version 1)
Quarter: 2014Q3

REPORT INFORMATION
  Report Type: Spontaneous
  Country: US (occurrence: US)
  Receive Date: 20140929
  Receipt Date: 20140929
  Transmission Date: 20150326
  Serious: No
  Sender: FDA-Public Use
  Company Number: US-PFIZER INC-2014267125

PATIENT
  Age: 58 Year
  Sex: Male
  Weight: 72.56 kg

DRUGS (1)
  1. ATORVASTATIN CALCIUM. [Suspect]
     Active Substance: ATORVASTATIN CALCIUM
     Indication: BLOOD CHOLESTEROL INCREASED
     Dosage: 20MG (1 TABLET) ONCE A DAY
     Route: 048
     Dates: start: 2013, end: 2014

REACTIONS (2)
  - Drug ineffective [Unknown]
  - Expired product administered [Unknown]

NARRATIVE: CASE EVENT DATE: 2014
